FAERS Safety Report 25138990 (Version 1)
Quarter: 2025Q1

REPORT INFORMATION
  Report Type: Spontaneous
  Country: IT (occurrence: IT)
  Receive Date: 20250331
  Receipt Date: 20250331
  Transmission Date: 20250408
  Serious: Yes (Other)
  Sender: EISAI
  Company Number: None

PATIENT
  Age: 69 Year
  Sex: Female

DRUGS (5)
  1. LENVATINIB [Suspect]
     Active Substance: LENVATINIB
     Indication: Endometrial adenocarcinoma
     Dates: start: 20230517
  2. LENVATINIB [Suspect]
     Active Substance: LENVATINIB
     Dates: start: 2023, end: 2023
  3. LENVATINIB [Suspect]
     Active Substance: LENVATINIB
     Dates: start: 2023, end: 20240704
  4. PEMBROLIZUMAB [Suspect]
     Active Substance: PEMBROLIZUMAB
     Indication: Endometrial cancer
     Dates: start: 20230517, end: 20240704
  5. MESALAMINE [Concomitant]
     Active Substance: MESALAMINE
     Indication: Crohn^s disease
     Dates: start: 20150915

REACTIONS (3)
  - Palmar-plantar erythrodysaesthesia syndrome [Recovering/Resolving]
  - Hypertension [Recovered/Resolved]
  - Hypothyroidic goitre [Recovering/Resolving]

NARRATIVE: CASE EVENT DATE: 20230704
